FAERS Safety Report 4679295-5 (Version None)
Quarter: 2005Q2

REPORT INFORMATION
  Report Type: 
  Country: None (occurrence: None)
  Receive Date: 20050531
  Receipt Date: 20050513
  Transmission Date: 20051028
  Serious: No
  Sender: FDA-Public Use
  Company Number: 2005VX000362

PATIENT
  Age: 29 Year
  Sex: Male

DRUGS (2)
  1. EFUDEX [Suspect]
     Indication: EYE DISORDER
     Dosage: 1 GTT; 4 TIMES A DAY; INTRAOCULAR
     Route: 031
     Dates: start: 20050510, end: 20050511
  2. PREDNISOLONE [Concomitant]

REACTIONS (4)
  - CORNEAL EROSION [None]
  - DRUG DISPENSING ERROR [None]
  - EYE IRRITATION [None]
  - VISION BLURRED [None]
